FAERS Safety Report 7332500-9 (Version None)
Quarter: 2011Q1

REPORT INFORMATION
  Report Type: 
  Country: None (occurrence: None)
  Receive Date: 20110304
  Receipt Date: 20110301
  Transmission Date: 20110831
  Serious: Yes (Life-Threatening, Hospitalization)
  Sender: FDA-Public Use
  Company Number: US-ROCHE-762993

PATIENT
  Sex: Male
  Weight: 66 kg

DRUGS (20)
  1. CISPLATIN [Suspect]
     Indication: OESOPHAGEAL CANCER METASTATIC
     Dosage: FREQUENCY: 2 WEEKS ON 1 OFF
     Route: 065
     Dates: start: 20101208, end: 20110215
  2. ACYCLOVIR [Concomitant]
  3. ASA [Concomitant]
  4. BEVACIZUMAB [Suspect]
     Indication: OESOPHAGEAL CANCER METASTATIC
     Route: 065
     Dates: start: 20101208, end: 20110208
  5. LORAZEPAM [Concomitant]
  6. PANCRELIPASE [Concomitant]
  7. ATROPINE [Concomitant]
  8. SCOPOLAMINE [Concomitant]
  9. TRAZODONE [Concomitant]
  10. VALACYCLOVIR [Concomitant]
  11. DOCETAXEL [Suspect]
     Indication: OESOPHAGEAL CANCER METASTATIC
     Dosage: FREQUENCY: 2 WEEKS, 1 OFF
     Route: 065
     Dates: start: 20101208, end: 20110215
  12. DIPHENOXYLATE [Concomitant]
  13. MEGESTROL ACETATE [Concomitant]
  14. IRINOTECAN [Suspect]
     Indication: OESOPHAGEAL CANCER METASTATIC
     Dosage: FREQUENCY: 2 WEEKS, 1 OFF
     Route: 065
     Dates: start: 20101208, end: 20110215
  15. PROCHLORPERAZINE [Concomitant]
  16. OXYCODONE [Concomitant]
  17. ERGOCALCIFEROL [Concomitant]
  18. ONDANSETRON [Concomitant]
  19. VALSARTAN [Concomitant]
  20. ESOMEPRAZOLE [Concomitant]

REACTIONS (2)
  - NEPHROLITHIASIS [None]
  - PULMONARY EMBOLISM [None]
